FAERS Safety Report 15186273 (Version 2)
Quarter: 2019Q1

REPORT INFORMATION
  Report Type: Report from Study
  Country: US (occurrence: US)
  Receive Date: 20180723
  Receipt Date: 20190130
  Transmission Date: 20190417
  Serious: No
  Sender: FDA-Public Use
  Company Number: US-EXELIXIS-CABO-18011924

PATIENT
  Sex: Male

DRUGS (18)
  1. AMLODIPINE [Concomitant]
     Active Substance: AMLODIPINE BESYLATE
  2. NOVOLOG [Concomitant]
     Active Substance: INSULIN ASPART
  3. COMETRIQ [Suspect]
     Active Substance: CABOZANTINIB S-MALATE
     Indication: METASTASES TO CENTRAL NERVOUS SYSTEM
     Dosage: 60 MG, QD
     Route: 048
     Dates: start: 20171011
  4. METOPROLOL. [Concomitant]
     Active Substance: METOPROLOL
  5. FAMOTIDINE. [Concomitant]
     Active Substance: FAMOTIDINE
  6. GABAPENTIN. [Concomitant]
     Active Substance: GABAPENTIN
  7. FISH OIL [Concomitant]
     Active Substance: FISH OIL
  8. FLONASE [Concomitant]
     Active Substance: FLUTICASONE PROPIONATE
  9. DILAUDID [Concomitant]
     Active Substance: HYDROMORPHONE HYDROCHLORIDE
  10. LEVEMIR [Concomitant]
     Active Substance: INSULIN DETEMIR
  11. ASPIRIN. [Concomitant]
     Active Substance: ASPIRIN
  12. DOCUSATE [Concomitant]
     Active Substance: DOCUSATE
  13. HYDRALAZINE [Concomitant]
     Active Substance: HYDRALAZINE HYDROCHLORIDE
  14. SIMVASTATIN. [Concomitant]
     Active Substance: SIMVASTATIN
  15. COMETRIQ [Suspect]
     Active Substance: CABOZANTINIB S-MALATE
     Indication: RENAL CANCER
     Dosage: 20 MG, QD
     Route: 048
     Dates: start: 20170517
  16. CALCIUM ACETATE. [Concomitant]
     Active Substance: CALCIUM ACETATE
  17. PLAVIX [Concomitant]
     Active Substance: CLOPIDOGREL BISULFATE
  18. ZETIA [Concomitant]
     Active Substance: EZETIMIBE

REACTIONS (2)
  - Nasopharyngitis [Unknown]
  - Off label use [Unknown]
